FAERS Safety Report 9522707 (Version 2)
Quarter: 2013Q3

REPORT INFORMATION
  Report Type: Report from Study
  Country: DE (occurrence: DE)
  Receive Date: 20130913
  Receipt Date: 20130918
  Transmission Date: 20140515
  Serious: Yes (Hospitalization)
  Sender: FDA-Public Use
  Company Number: DE-PFIZER INC-2013262073

PATIENT
  Age: 50 Year
  Sex: Male
  Weight: 70.9 kg

DRUGS (3)
  1. MINOXIDIL [Suspect]
  2. CERTICAN [Suspect]
     Indication: RENAL TRANSPLANT
     Dosage: 1.5 MG, 1X/DAY
     Dates: start: 20130702
  3. SANDIMMUN [Suspect]
     Indication: RENAL TRANSPLANT
     Dosage: 100 MG, 1X/DAY
     Dates: start: 20130702

REACTIONS (1)
  - Renal impairment [Not Recovered/Not Resolved]
